FAERS Safety Report 24108441 (Version 1)
Quarter: 2024Q3

REPORT INFORMATION
  Report Type: Spontaneous
  Country: US (occurrence: US)
  Receive Date: 20240718
  Receipt Date: 20240718
  Transmission Date: 20241016
  Serious: No
  Sender: JOHNSON AND JOHNSON
  Company Number: US-JNJFOC-20240741303

PATIENT
  Age: 8 Year
  Sex: Male

DRUGS (1)
  1. RISPERDAL [Suspect]
     Active Substance: RISPERIDONE
     Indication: Mood swings
     Dosage: VARYING DOSES OF 1 MG, 3 MG AND 5 MG WITH VARYING FREQUENCY OF ONCE AND TWICE DAILY
     Route: 048

REACTIONS (2)
  - Overweight [Unknown]
  - Off label use [Unknown]

NARRATIVE: CASE EVENT DATE: 20110301
